FAERS Safety Report 5701619-8 (Version None)
Quarter: 2008Q2

REPORT INFORMATION
  Report Type: 
  Country: None (occurrence: None)
  Receive Date: 20080410
  Receipt Date: 20080410
  Transmission Date: 20081010
  Serious: Yes (Other)
  Sender: FDA-Public Use
  Company Number: None

PATIENT
  Sex: Male
  Weight: 85.1 kg

DRUGS (1)
  1. PRANDIN [Suspect]
     Dosage: 0.1MG ONCE TAB TID (QWK) PO
     Route: 048
     Dates: start: 20070822, end: 20080403

REACTIONS (5)
  - CHEST PAIN [None]
  - DYSPEPSIA [None]
  - DYSPNOEA [None]
  - FATIGUE [None]
  - PALPITATIONS [None]
